FAERS Safety Report 8184603-7 (Version None)
Quarter: 2012Q1

REPORT INFORMATION
  Report Type: 
  Country: None (occurrence: None)
  Receive Date: 20120210
  Receipt Date: 20110914
  Transmission Date: 20120608
  Serious: Yes (Other)
  Sender: FDA-Public Use
  Company Number: 2011BH024753

PATIENT
  Age: 62 Year
  Sex: Male

DRUGS (2)
  1. DOXORUBICIN HCL [Suspect]
     Indication: SARCOMA
     Dosage: ;UNK;UNK
  2. IFEX/MESNEX KIT [Suspect]
     Indication: SARCOMA
     Dosage: ;UNK;UNK

REACTIONS (1)
  - ENCEPHALOPATHY [None]
